FAERS Safety Report 9159297 (Version 1)
Quarter: 2013Q1

REPORT INFORMATION
  Report Type: Spontaneous
  Country: US (occurrence: None)
  Receive Date: 20130212
  Receipt Date: 20130212
  Transmission Date: 20140127
  Serious: Yes (Hospitalization)
  Sender: FDA-Public Use
  Company Number: 2013MA000822

PATIENT
  Age: 20 Year
  Sex: Female

DRUGS (1)
  1. SPIRONOLACTONE TABLETS USP, 100 MG (PUREPAC) [Suspect]
     Indication: ACNE
     Route: 048
     Dates: start: 2009, end: 20130130

REACTIONS (2)
  - Abdominal pain upper [None]
  - Oropharyngeal pain [None]
